FAERS Safety Report 14630028 (Version 10)
Quarter: 2019Q4

REPORT INFORMATION
  Report Type: Spontaneous
  Country: US (occurrence: US)
  Receive Date: 20180313
  Receipt Date: 20191209
  Transmission Date: 20200122
  Serious: No
  Sender: FDA-Public Use
  Company Number: US-PFIZER INC-2018023305

PATIENT
  Age: 71 Year
  Sex: Male
  Weight: 80 kg

DRUGS (11)
  1. INLYTA [Suspect]
     Active Substance: AXITINIB
     Dosage: 10 MG, UNK
  2. INLYTA [Suspect]
     Active Substance: AXITINIB
     Dosage: UNK, CYCLIC (ONE WEEK ON THEN ONE WEEK OFF)
     Dates: start: 201709
  3. INLYTA [Suspect]
     Active Substance: AXITINIB
     Dosage: 1 DF, 1X/DAY( 1 TABLET A DAY )
     Dates: start: 2017
  4. INLYTA [Suspect]
     Active Substance: AXITINIB
     Dosage: 5 MG, 2X/DAY, (TAKE 5 MG IN AM + 5 MG IN PM)
  5. INLYTA [Suspect]
     Active Substance: AXITINIB
     Dosage: 2.5 MG, 2X/DAY (2.5MILLIGRAMS BY MOUTH IN THE MORNING WITH WATER MILK OR JUICE AND 2.5 MILLIGRAMS)
     Route: 048
  6. INLYTA [Suspect]
     Active Substance: AXITINIB
     Dosage: 5 MG, CYCLIC (2.5 MG 2X A DAY FOR ONE WEEK AND ONE WEEK OFF)
     Dates: start: 201608
  7. INLYTA [Suspect]
     Active Substance: AXITINIB
     Indication: RENAL CANCER METASTATIC
     Dosage: 2 DF, DAILY (2 PILLS EVERYDAY)
  8. INLYTA [Suspect]
     Active Substance: AXITINIB
     Dosage: 5 MG CYCLIC,(EVERY OTHER WEEK 7 DAYS ON 7 DAYS OFF)
     Route: 048
  9. INLYTA [Suspect]
     Active Substance: AXITINIB
     Dosage: 5 MG, CYCLIC (7 DAYS THEN OFF FOR 7 DAYS)
     Dates: start: 20170110
  10. INLYTA [Suspect]
     Active Substance: AXITINIB
     Dosage: UNK, 2X/DAY (HALF A TABLET IN THE MORNING AND HALF A TABLET AT NIGHT DAILY)
     Dates: start: 201703
  11. INLYTA [Suspect]
     Active Substance: AXITINIB
     Dosage: 5 MG, CYCLIC (TAKE 3 TABLETS PO EVERY MORNING, TAKE 2 TABLETS PO EVERY EVENING 7 DAYS ON 7 DAYS OFF)
     Route: 048

REACTIONS (12)
  - Blood test abnormal [Recovered/Resolved]
  - Aphonia [Not Recovered/Not Resolved]
  - Intentional product misuse [Unknown]
  - Abdominal discomfort [Not Recovered/Not Resolved]
  - Fatigue [Not Recovered/Not Resolved]
  - Wrong technique in product usage process [Unknown]
  - Tremor [Unknown]
  - Balance disorder [Not Recovered/Not Resolved]
  - Condition aggravated [Not Recovered/Not Resolved]
  - Protein total increased [Recovered/Resolved]
  - Fine motor skill dysfunction [Not Recovered/Not Resolved]
  - Malaise [Unknown]

NARRATIVE: CASE EVENT DATE: 201603
